FAERS Safety Report 21641198 (Version 1)
Quarter: 2022Q4

REPORT INFORMATION
  Report Type: Report from Study
  Country: CA (occurrence: CA)
  Receive Date: 20221125
  Receipt Date: 20221125
  Transmission Date: 20230112
  Serious: Yes (Other)
  Sender: FDA-Public Use
  Company Number: CA-002147023-NVSC2022CA261955

PATIENT
  Sex: Male

DRUGS (9)
  1. LOSARTAN [Suspect]
     Active Substance: LOSARTAN
     Indication: Blood pressure measurement
     Dosage: 100 MG, QD
     Route: 048
     Dates: start: 2012
  2. PREDNISONE [Concomitant]
     Active Substance: PREDNISONE
     Indication: Chronic spontaneous urticaria
     Dosage: 1 DOSAGE FORM, QD, (EVERY FIVE DAYS UNTIL HE FINISHES)
     Route: 048
     Dates: start: 20221101
  3. PREDNISONE [Concomitant]
     Active Substance: PREDNISONE
     Dosage: 30 MG, QD, (11 TAPER )
     Route: 048
  4. RHINOCORT [Concomitant]
     Active Substance: BUDESONIDE
     Indication: Sneezing
     Dosage: 2 DOSAGE FORM, QD, (2 SPRAYS EACH NOSTRIL DAILY)
     Route: 045
  5. BETADERM [Concomitant]
     Active Substance: BETAMETHASONE VALERATE
     Indication: Chronic spontaneous urticaria
     Dosage: 1 DOSAGE FORM, BID, (0.01)
     Route: 061
     Dates: start: 2020
  6. BILASTINE [Concomitant]
     Active Substance: BILASTINE
     Indication: Chronic spontaneous urticaria
     Dosage: 2 DOSAGE FORM, QD
     Route: 048
     Dates: start: 202010
  7. CHOLESTYRAMINE [Concomitant]
     Active Substance: CHOLESTYRAMINE
     Indication: Product used for unknown indication
     Dosage: UNK
     Route: 065
  8. VENTOLIN [Concomitant]
     Active Substance: ALBUTEROL SULFATE
     Indication: Product used for unknown indication
     Dosage: UNK, PRN
     Route: 065
  9. VENTOLIN [Concomitant]
     Active Substance: ALBUTEROL SULFATE
     Dosage: 2.5 MG, BID
     Route: 065

REACTIONS (22)
  - Bronchus compression [Unknown]
  - Pulmonary tuberculosis [Recovered/Resolved with Sequelae]
  - Wheezing [Unknown]
  - Stress [Unknown]
  - Constipation [Unknown]
  - Sneezing [Unknown]
  - Rhinorrhoea [Unknown]
  - Nasal congestion [Unknown]
  - Asthma [Unknown]
  - Chronic obstructive pulmonary disease [Unknown]
  - Blood immunoglobulin E increased [Unknown]
  - Atopy [Unknown]
  - Lymphadenopathy [Unknown]
  - Lower respiratory tract infection [Unknown]
  - Chest discomfort [Unknown]
  - Upper-airway cough syndrome [Unknown]
  - Productive cough [Unknown]
  - Urticaria [Unknown]
  - Pruritus [Unknown]
  - Dyspnoea exertional [Not Recovered/Not Resolved]
  - Cough [Recovering/Resolving]
  - Hypertension [Unknown]
